FAERS Safety Report 15073616 (Version 1)
Quarter: 2018Q2

REPORT INFORMATION
  Report Type: Spontaneous
  Country: US (occurrence: US)
  Receive Date: 20180627
  Receipt Date: 20180627
  Transmission Date: 20180711
  Serious: No
  Sender: FDA-Public Use
  Company Number: US-GLENMARK PHARMACEUTICALS-2018GMK032038

PATIENT

DRUGS (4)
  1. CLOTRIMAZOLE. [Suspect]
     Active Substance: CLOTRIMAZOLE
     Indication: PSORIASIS
     Dosage: 1 G, QD
     Route: 061
     Dates: start: 201711, end: 201711
  2. HONGO KILLER [Concomitant]
     Indication: ONYCHOMYCOSIS
     Dosage: UNK UNK, TID
     Route: 061
  3. FUNGI-NAIL [Concomitant]
     Indication: ONYCHOMYCOSIS
     Dosage: UNK, (AROUND THE RIM CUTICLE)
     Route: 061
  4. CLOTRIMAZOLE. [Suspect]
     Active Substance: CLOTRIMAZOLE
     Indication: ONYCHOMYCOSIS
     Dosage: 1 G, QD
     Route: 061
     Dates: start: 20180130

REACTIONS (4)
  - Product use in unapproved indication [Unknown]
  - Intentional product use issue [Unknown]
  - No adverse event [Unknown]
  - Wrong technique in product usage process [Unknown]

NARRATIVE: CASE EVENT DATE: 201711
